FAERS Safety Report 8995326 (Version 1)
Quarter: 2013Q1

REPORT INFORMATION
  Report Type: Spontaneous
  Country: IT (occurrence: IT)
  Receive Date: 20130103
  Receipt Date: 20130103
  Transmission Date: 20140127
  Serious: Yes (Other)
  Sender: FDA-Public Use
  Company Number: IT-TEVA-378020ISR

PATIENT
  Age: 59 Year
  Sex: Male

DRUGS (2)
  1. AMIODARONE CLORIDRATO [Suspect]
     Dosage: 1 DOSAGE FORMS DAILY;
     Route: 048
     Dates: start: 20121020, end: 20121021
  2. COUMADIN [Concomitant]

REACTIONS (2)
  - Presyncope [Recovering/Resolving]
  - Extrasystoles [Unknown]
